FAERS Safety Report 15357167 (Version 1)
Quarter: 2018Q3

REPORT INFORMATION
  Report Type: Report from Study
  Country: None (occurrence: NL)
  Receive Date: 20180906
  Receipt Date: 20180906
  Transmission Date: 20181010
  Serious: Yes (Death)
  Sender: FDA-Public Use
  Company Number: NL-ABBVIE-18S-114-2476552-00

PATIENT
  Age: 78 Year
  Sex: Female

DRUGS (2)
  1. BISACODYL. [Concomitant]
     Active Substance: BISACODYL
     Indication: ABNORMAL FAECES
  2. DUODOPA [Suspect]
     Active Substance: CARBIDOPA\LEVODOPA
     Indication: PARKINSON^S DISEASE
     Dosage: MD: 9.4, CD: 2.0, ED: 1.3
     Route: 050
     Dates: start: 20160404

REACTIONS (1)
  - Death [Fatal]

NARRATIVE: CASE EVENT DATE: 20180822
